FAERS Safety Report 16046461 (Version 1)
Quarter: 2019Q2

REPORT INFORMATION
  Report Type: Spontaneous
  Country: US (occurrence: US)
  Receive Date: 20190307
  Receipt Date: 20190307
  Transmission Date: 20190711
  Serious: Yes (Hospitalization)
  Sender: FDA-Public Use
  Company Number: None

PATIENT
  Age: 70 Year
  Sex: Male

DRUGS (2)
  1. REVLIMID [Suspect]
     Active Substance: LENALIDOMIDE
     Indication: LYMPHOMA
     Route: 048
     Dates: start: 20190225
  2. RICE CHEMO [Concomitant]
     Dates: start: 20190225, end: 20190228

REACTIONS (5)
  - Haematology test abnormal [None]
  - Hypophagia [None]
  - Decreased appetite [None]
  - Hypokalaemia [None]
  - Asthenia [None]

NARRATIVE: CASE EVENT DATE: 20190306
